FAERS Safety Report 8816720 (Version 1)
Quarter: 2012Q4

REPORT INFORMATION
  Report Type: Spontaneous
  Country: US (occurrence: None)
  Receive Date: 20121001
  Receipt Date: 20121001
  Transmission Date: 20130627
  Serious: Yes (Hospitalization)
  Sender: FDA-Public Use
  Company Number: MIN-00874

PATIENT
  Age: 21 Year
  Sex: Female

DRUGS (3)
  1. MINOCYCLINE [Suspect]
     Indication: ACNE
  2. ORTHO-TRI-CYCLEN LO (ETHINYL ESTRADIOL) [Concomitant]
  3. NORGESTIMATE [Concomitant]

REACTIONS (18)
  - Polyarteritis nodosa [None]
  - Renal artery stenosis [None]
  - Salt craving [None]
  - Polyuria [None]
  - Increased tendency to bruise [None]
  - Weight decreased [None]
  - Pharyngitis [None]
  - Headache [None]
  - Sinus tachycardia [None]
  - Hypertension [None]
  - Hyponatraemia [None]
  - Hypokalaemia [None]
  - Blood chloride decreased [None]
  - Ejection fraction decreased [None]
  - Proteinuria [None]
  - Renal neoplasm [None]
  - Renal aneurysm [None]
  - Vasculitis [None]
